FAERS Safety Report 20922101 (Version 1)
Quarter: 2022Q2

REPORT INFORMATION
  Report Type: Spontaneous
  Country: DE (occurrence: DE)
  Receive Date: 20220607
  Receipt Date: 20220607
  Transmission Date: 20220721
  Serious: Yes (Other)
  Sender: FDA-Public Use
  Company Number: DE-Desitin-2022-01500

PATIENT
  Age: 52 Year
  Sex: Female

DRUGS (5)
  1. LAMOTRIGINE [Interacting]
     Active Substance: LAMOTRIGINE
     Indication: Epilepsy
     Dosage: 300 MILLIGRAM, ONCE A DAY (IN THE MORNING 200MG AND IN THE EVENING 100MG)
     Route: 065
  2. LAMOTRIGINE [Interacting]
     Active Substance: LAMOTRIGINE
     Dosage: 225 MILLIGRAM, ONCE A DAY
     Route: 065
     Dates: start: 2020
  3. ESTRADIOL [Interacting]
     Active Substance: ESTRADIOL
     Indication: Product used for unknown indication
     Dosage: UNK (2 PUFFS IN THE MORNING)
     Route: 065
  4. LEVETIRACETAM [Concomitant]
     Active Substance: LEVETIRACETAM
     Indication: Epilepsy
     Dosage: 1000 MILLIGRAM, TWO TIMES A DAY
     Route: 065
  5. PROGESTERONE [Concomitant]
     Active Substance: PROGESTERONE
     Indication: Product used for unknown indication
     Dosage: UNK (IN THE EVENING)
     Route: 065

REACTIONS (4)
  - Therapeutic product effect incomplete [Recovering/Resolving]
  - Seizure [Recovering/Resolving]
  - Drug interaction [Unknown]
  - Anticonvulsant drug level decreased [Unknown]
